FAERS Safety Report 4548113-8 (Version None)
Quarter: 2004Q4

REPORT INFORMATION
  Report Type: 
  Country: None (occurrence: None)
  Receive Date: 20041220
  Receipt Date: 20040123
  Transmission Date: 20050328
  Serious: Yes (Other)
  Sender: FDA-Public Use
  Company Number: CEL-2004-00103-ROC

PATIENT
  Age: 70 Year
  Sex: Male
  Weight: 107 kg

DRUGS (21)
  1. METOLAZONE [Suspect]
     Dosage: 5 MG, BIW
     Dates: start: 20031202
  2. VALSARTAN (VALSARTAN) [Suspect]
     Indication: ESSENTIAL HYPERTENSION
     Dates: start: 19991111
  3. AMLODIPINE [Suspect]
     Indication: ESSENTIAL HYPERTENSION
     Dates: start: 19991111
  4. LASIX [Suspect]
     Indication: CARDIOMYOPATHY
     Dosage: 40 MG (40 MG, DAILY), PO
     Route: 048
     Dates: start: 20030131
  5. HYDROCHLOROTHIAZIDE [Suspect]
     Indication: ESSENTIAL HYPERTENSION
     Dates: start: 19991111
  6. IMDUR [Concomitant]
  7. DITROPAN [Concomitant]
  8. LIPITOR [Concomitant]
  9. ACETYLSALICYLIC ACID SRT [Concomitant]
  10. ACIPHEX [Concomitant]
  11. COREG [Concomitant]
  12. ALDACTONE [Concomitant]
  13. SUDAFED 12 HOUR [Concomitant]
  14. VITAMIN C (ASCORBIC ACID) [Concomitant]
  15. VITAMIN E [Concomitant]
  16. FISH OIL (FISH OIL) [Concomitant]
  17. MEVACOR [Concomitant]
  18. MULTIVITAMIN [Concomitant]
  19. NITROSTAT [Concomitant]
  20. ASPIRIN [Concomitant]
  21. PLAVIX [Concomitant]

REACTIONS (1)
  - RENAL IMPAIRMENT [None]
